FAERS Safety Report 7345555-2 (Version None)
Quarter: 2011Q1

REPORT INFORMATION
  Report Type: 
  Country: None (occurrence: None)
  Receive Date: 20110310
  Receipt Date: 20110224
  Transmission Date: 20110831
  Serious: Yes (Death, Hospitalization)
  Sender: FDA-Public Use
  Company Number: FR-GENENTECH-294104

PATIENT
  Sex: Male
  Weight: 59 kg

DRUGS (13)
  1. BLINDED VINCRISTINE [Suspect]
     Indication: DIFFUSE LARGE B-CELL LYMPHOMA
     Dosage: 1 G, Q3W
     Route: 042
     Dates: start: 20090128, end: 20090403
  2. CYCLOPHOSPHAMIDE [Suspect]
     Indication: DIFFUSE LARGE B-CELL LYMPHOMA
     Dosage: 1310 MG, Q3W
     Route: 042
     Dates: start: 20090129, end: 20090403
  3. DOXORUBICIN [Suspect]
     Indication: DIFFUSE LARGE B-CELL LYMPHOMA
     Dosage: 88 MG, Q3W
     Route: 042
     Dates: start: 20090129, end: 20090403
  4. RITUXIMAB [Suspect]
     Indication: DIFFUSE LARGE B-CELL LYMPHOMA
     Dosage: 660 MG, Q3W
     Route: 042
     Dates: start: 20090129, end: 20090403
  5. BLINDED BEVACIZUMAB [Suspect]
     Indication: DIFFUSE LARGE B-CELL LYMPHOMA
     Dosage: 1 G, Q3W
     Route: 042
     Dates: start: 20090128, end: 20090403
  6. ZOCOR [Concomitant]
     Indication: PRODUCT USED FOR UNKNOWN INDICATION
     Dosage: UNK
  7. CYCLOPHOSPHAMIDE [Suspect]
     Indication: DIFFUSE LARGE B-CELL LYMPHOMA
     Dosage: 1 G, Q3W
     Route: 042
     Dates: start: 20090128, end: 20090403
  8. BLINDED DOXORUBICIN [Suspect]
     Indication: DIFFUSE LARGE B-CELL LYMPHOMA
     Dosage: 1 G, Q3W
     Route: 042
     Dates: start: 20090128, end: 20090403
  9. BLINDED PLACEBO [Suspect]
     Indication: DIFFUSE LARGE B-CELL LYMPHOMA
     Dosage: 1 G, Q3W
     Route: 042
     Dates: start: 20090128, end: 20090403
  10. BLINDED RITUXIMAB [Suspect]
     Indication: DIFFUSE LARGE B-CELL LYMPHOMA
     Dosage: 1 G, Q3W
     Route: 042
     Dates: start: 20090128, end: 20090403
  11. VINCRISTINE [Suspect]
     Indication: DIFFUSE LARGE B-CELL LYMPHOMA
     Dosage: 2 MG, Q3W
     Route: 042
     Dates: start: 20090129, end: 20090403
  12. PREDNISONE [Suspect]
     Indication: DIFFUSE LARGE B-CELL LYMPHOMA
     Dosage: 60 MG, Q3W
     Route: 048
     Dates: start: 20090129, end: 20090403
  13. PREDNISONE TAB [Suspect]
     Indication: DIFFUSE LARGE B-CELL LYMPHOMA
     Dosage: 1 G, Q3W
     Route: 042
     Dates: start: 20090128, end: 20090403

REACTIONS (2)
  - FEBRILE NEUTROPENIA [None]
  - LEUKOENCEPHALOPATHY [None]
